FAERS Safety Report 7068129-X (Version None)
Quarter: 2010Q4

REPORT INFORMATION
  Report Type: 
  Country: None (occurrence: None)
  Receive Date: 20101027
  Receipt Date: 20101027
  Transmission Date: 20110411
  Serious: Yes (Hospitalization, Disabling, Other)
  Sender: FDA-Public Use
  Company Number: None

PATIENT
  Sex: Female
  Weight: 83.9154 kg

DRUGS (2)
  1. FOSAMAX [Suspect]
     Indication: OSTEOPENIA
     Dosage: 1 WEEKLY PO
     Route: 048
     Dates: start: 19990101, end: 20050101
  2. FOSAMAX [Suspect]
     Indication: FEMUR FRACTURE
     Dosage: 1 DAILY PO
     Route: 048
     Dates: start: 20050101, end: 20080101

REACTIONS (5)
  - BONE PAIN [None]
  - FEMUR FRACTURE [None]
  - GAIT DISTURBANCE [None]
  - IMPAIRED HEALING [None]
  - PAIN [None]
